FAERS Safety Report 25841016 (Version 1)
Quarter: 2025Q3

REPORT INFORMATION
  Report Type: Spontaneous
  Country: US (occurrence: None)
  Receive Date: 20250923
  Receipt Date: 20250923
  Transmission Date: 20251021
  Serious: Yes (Hospitalization)
  Sender: FDA-CTU
  Company Number: None

PATIENT
  Age: 37 Year
  Sex: Female
  Weight: 77.4 kg

DRUGS (1)
  1. HYDROCODONE [Suspect]
     Active Substance: HYDROCODONE
     Dosage: OTHER QUANTITY : 120 TABLET(S);?FREQUENCY : EVERY 4 HOURS;?
     Route: 048

REACTIONS (2)
  - Product prescribing error [None]
  - Product prescribing issue [None]

NARRATIVE: CASE EVENT DATE: 20250915
